FAERS Safety Report 11191848 (Version 1)
Quarter: 2015Q2

REPORT INFORMATION
  Report Type: Spontaneous
  Country: DE (occurrence: None)
  Receive Date: 20150612
  Receipt Date: 20150612
  Transmission Date: 20150821
  Serious: Yes (Other)
  Sender: FDA-Public Use
  Company Number: 8027079

PATIENT
  Age: 39 Year
  Sex: Female
  Weight: 118 kg

DRUGS (2)
  1. NOVOTHYRAL (NOVOTHYRAL) (LEVOTHYROXINE SODIUM, LIOTHYRONINE SODIUM) [Suspect]
     Active Substance: LEVOTHYROXINE SODIUM\LIOTHYRONINE SODIUM
     Indication: POST PROCEDURAL HYPOTHYROIDISM
     Route: 048
     Dates: start: 2011
  2. CALCIMAGON D3 [Suspect]
     Active Substance: CALCIUM\CHOLECALCIFEROL
     Indication: HYPOCALCAEMIA
     Dosage: 500 (UNITS SPECIFIED)
     Route: 048

REACTIONS (9)
  - Flatulence [None]
  - Nausea [None]
  - Dizziness [None]
  - Foaming at mouth [None]
  - Fatigue [None]
  - Feeling abnormal [None]
  - Disturbance in attention [None]
  - Visual impairment [None]
  - Lymphoma [None]

NARRATIVE: CASE EVENT DATE: 2011
